FAERS Safety Report 10750558 (Version 1)
Quarter: 2015Q1

REPORT INFORMATION
  Report Type: Spontaneous
  Country: DE (occurrence: DE)
  Receive Date: 20150130
  Receipt Date: 20150130
  Transmission Date: 20150721
  Serious: Yes (Life-Threatening, Hospitalization)
  Sender: FDA-Public Use
  Company Number: DE-ROCHE-1490030

PATIENT
  Age: 62 Year
  Sex: Female
  Weight: 90 kg

DRUGS (10)
  1. DOCETAXEL. [Suspect]
     Active Substance: DOCETAXEL
     Indication: BREAST CANCER
     Route: 042
     Dates: start: 20140319
  2. HERCEPTIN [Suspect]
     Active Substance: TRASTUZUMAB
     Indication: BREAST CANCER
     Route: 042
     Dates: start: 20140319
  3. ALLOPURINOL. [Concomitant]
     Active Substance: ALLOPURINOL
     Route: 048
  4. PERJETA [Suspect]
     Active Substance: PERTUZUMAB
     Indication: BREAST CANCER
     Route: 042
     Dates: start: 20140319
  5. VALSARTAN HCT [Concomitant]
     Dosage: 80/12.5 MG
     Route: 048
  6. IBUPROFEN. [Concomitant]
     Active Substance: IBUPROFEN
     Route: 048
     Dates: end: 201404
  7. TORASEMID [Concomitant]
     Active Substance: TORSEMIDE
     Route: 065
     Dates: end: 20140420
  8. SITAGLIPTINA/METFORMINA [Concomitant]
     Dosage: 50/100 MG
     Route: 048
  9. ATORVASTATIN [Concomitant]
     Active Substance: ATORVASTATIN
     Route: 048
  10. PANTOPRAZOLE [Concomitant]
     Active Substance: PANTOPRAZOLE SODIUM
     Route: 048

REACTIONS (8)
  - Cardiac failure [Unknown]
  - Metabolic acidosis [Recovered/Resolved]
  - Device related infection [Recovered/Resolved]
  - Respiratory failure [Recovered/Resolved]
  - Diarrhoea [Recovered/Resolved]
  - Pleural effusion [Unknown]
  - Acute prerenal failure [Recovered/Resolved]
  - Meningioma [Unknown]

NARRATIVE: CASE EVENT DATE: 20140405
